FAERS Safety Report 8543325-0 (Version None)
Quarter: 2012Q3

REPORT INFORMATION
  Report Type: 
  Country: None (occurrence: None)
  Receive Date: 20120727
  Receipt Date: 20120719
  Transmission Date: 20120928
  Serious: Yes (Hospitalization, Other)
  Sender: FDA-Public Use
  Company Number: US-US-EMD SERONO, INC.-7045917

PATIENT
  Sex: Male
  Weight: 109 kg

DRUGS (3)
  1. REBIF [Suspect]
     Indication: RELAPSING-REMITTING MULTIPLE SCLEROSIS
     Route: 058
     Dates: start: 20091201, end: 20110201
  2. REBIF [Suspect]
     Route: 058
     Dates: start: 20110201
  3. EFFEXOR [Concomitant]
     Indication: ANXIETY
     Dates: end: 20110201

REACTIONS (9)
  - MULTIPLE SCLEROSIS RELAPSE [None]
  - HEPATIC ENZYME INCREASED [None]
  - AORTIC DILATATION [None]
  - INFLUENZA LIKE ILLNESS [None]
  - INJECTION SITE PAIN [None]
  - NAUSEA [None]
  - DIZZINESS [None]
  - MYALGIA [None]
  - INJECTION SITE ERYTHEMA [None]
